FAERS Safety Report 13756247 (Version 4)
Quarter: 2017Q3

REPORT INFORMATION
  Report Type: Spontaneous
  Country: US (occurrence: US)
  Receive Date: 20170714
  Receipt Date: 20170921
  Transmission Date: 20171127
  Serious: No
  Sender: FDA-Public Use
  Company Number: US-009507513-1707USA000074

PATIENT
  Age: 34 Year
  Sex: Female
  Weight: 104.31 kg

DRUGS (3)
  1. NEXPLANON [Suspect]
     Active Substance: ETONOGESTREL
     Indication: CONTRACEPTION
     Dosage: 68 MG, Q 3 YEARS,, IN THE SULCUS BICIPITALIS MEDIALIS (GROOVE BETWEEN BICEPS AND TRICEPS)
     Route: 059
     Dates: start: 20170503, end: 20170711
  2. LABETALOL [Concomitant]
     Active Substance: LABETALOL\LABETALOL HYDROCHLORIDE
     Indication: HYPERTENSION
     Dosage: 100 (UNIT NOT PROVIDED), TOTAL DAILY DOSE 200 (UNIT NOT PROVIDED)
     Route: 048
     Dates: start: 201703
  3. SUMATRIPTAN. [Concomitant]
     Active Substance: SUMATRIPTAN
     Indication: MIGRAINE
     Dosage: 100 (UNIT NOT PROVIDED), AS NEEDED
     Route: 048
     Dates: start: 2015

REACTIONS (6)
  - Device breakage [Unknown]
  - Implant site inflammation [Recovered/Resolved]
  - Device deployment issue [Recovered/Resolved]
  - Device expulsion [Recovered/Resolved]
  - Device kink [Unknown]
  - Implant site dehiscence [Recovered/Resolved]

NARRATIVE: CASE EVENT DATE: 20170503
